FAERS Safety Report 11319229 (Version 1)
Quarter: 2015Q3

REPORT INFORMATION
  Report Type: Spontaneous
  Country: US (occurrence: None)
  Receive Date: 20150728
  Receipt Date: 20150728
  Transmission Date: 20151125
  Serious: Yes (Death, Hospitalization)
  Sender: FDA-Public Use
  Company Number: None

PATIENT
  Age: 83 Year
  Sex: Female
  Weight: 64.9 kg

DRUGS (1)
  1. SUNITINIB MALATE (SU011248 L-MALATE) [Suspect]
     Active Substance: SUNITINIB MALATE
     Dates: end: 20150405

REACTIONS (9)
  - Chest pain [None]
  - Nasopharyngitis [None]
  - Haemoglobin decreased [None]
  - Gastric ulcer haemorrhage [None]
  - Cold sweat [None]
  - Respiratory failure [None]
  - Hypotension [None]
  - Platelet count decreased [None]
  - Aspiration [None]

NARRATIVE: CASE EVENT DATE: 20150416
